FAERS Safety Report 7548571-0 (Version None)
Quarter: 2011Q2

REPORT INFORMATION
  Report Type: 
  Country: None (occurrence: None)
  Receive Date: 20110615
  Receipt Date: 20110608
  Transmission Date: 20111010
  Serious: Yes (Other)
  Sender: FDA-Public Use
  Company Number: US-AMGEN-USASP2011029690

PATIENT
  Sex: Female

DRUGS (3)
  1. NEUPOGEN [Suspect]
     Indication: CHEMOTHERAPY
     Dates: start: 20050801
  2. CARBOPLATIN [Concomitant]
     Dosage: UNK
     Dates: start: 20050101
  3. TAXOL [Concomitant]
     Dosage: UNK
     Dates: start: 20050101

REACTIONS (8)
  - OVARIAN CANCER METASTATIC [None]
  - LUNG NEOPLASM [None]
  - SURGERY [None]
  - BRAIN NEOPLASM MALIGNANT [None]
  - CONFUSIONAL STATE [None]
  - VOMITING [None]
  - VISUAL FIELD DEFECT [None]
  - DEPRESSION [None]
